FAERS Safety Report 12622065 (Version 1)
Quarter: 2016Q3

REPORT INFORMATION
  Report Type: Spontaneous
  Country: US (occurrence: US)
  Receive Date: 20160804
  Receipt Date: 20160804
  Transmission Date: 20161109
  Serious: No
  Sender: FDA-Public Use
  Company Number: US-ANACOR-2016ANA00140

PATIENT
  Sex: Female
  Weight: 81.63 kg

DRUGS (1)
  1. KERYDIN [Suspect]
     Active Substance: TAVABOROLE
     Indication: FUNGAL INFECTION
     Dosage: 1 DOSAGE UNITS, 1X/DAY
     Route: 061
     Dates: start: 201603, end: 20160405

REACTIONS (3)
  - Application site vesicles [Unknown]
  - Application site hypersensitivity [Unknown]
  - Application site exfoliation [Unknown]

NARRATIVE: CASE EVENT DATE: 2016
